FAERS Safety Report 18381769 (Version 1)
Quarter: 2020Q4

REPORT INFORMATION
  Report Type: Spontaneous
  Country: US (occurrence: US)
  Receive Date: 20201013
  Receipt Date: 20201013
  Transmission Date: 20210114
  Serious: No
  Sender: FDA-Public Use
  Company Number: None

PATIENT
  Age: 80 Year
  Sex: Female
  Weight: 57.4 kg

DRUGS (16)
  1. VITAMIN D (CHOLECALCIFEROL) [Concomitant]
     Active Substance: CHOLECALCIFEROL
  2. POTASSIUM [Concomitant]
     Active Substance: POTASSIUM
  3. CALCIUM CARBONATE ANTACID [Concomitant]
  4. IBUPROFEN. [Concomitant]
     Active Substance: IBUPROFEN
  5. LAMOTRIGINE. [Concomitant]
     Active Substance: LAMOTRIGINE
  6. ELIQUIS [Concomitant]
     Active Substance: APIXABAN
  7. RESTASIS [Concomitant]
     Active Substance: CYCLOSPORINE
  8. FOLIC ACID. [Concomitant]
     Active Substance: FOLIC ACID
  9. REFRESH [Concomitant]
     Active Substance: UNSPECIFIED INGREDIENT
  10. ATENOLOL. [Concomitant]
     Active Substance: ATENOLOL
  11. GABAPENTIN. [Concomitant]
     Active Substance: GABAPENTIN
  12. EXEMESTANE. [Concomitant]
     Active Substance: EXEMESTANE
  13. LASIX [Concomitant]
     Active Substance: FUROSEMIDE
  14. CAPECITABINE. [Suspect]
     Active Substance: CAPECITABINE
     Indication: BREAST CANCER
     Route: 048
     Dates: start: 20200327, end: 20201013
  15. COLACE [Concomitant]
     Active Substance: DOCUSATE SODIUM
  16. LISINOPRIL. [Concomitant]
     Active Substance: LISINOPRIL

REACTIONS (1)
  - Disease progression [None]

NARRATIVE: CASE EVENT DATE: 20201013
